FAERS Safety Report 5762385-3 (Version None)
Quarter: 2008Q2

REPORT INFORMATION
  Report Type: 
  Country: None (occurrence: None)
  Receive Date: 20080609
  Receipt Date: 20080528
  Transmission Date: 20081010
  Serious: Yes (Other)
  Sender: FDA-Public Use
  Company Number: DE-AMGEN-UK276204

PATIENT
  Sex: Female
  Weight: 61 kg

DRUGS (4)
  1. NEULASTA [Suspect]
     Indication: CHEMOTHERAPY
     Route: 058
     Dates: start: 20080307
  2. TAXOL [Suspect]
     Route: 042
     Dates: start: 20080306
  3. EPIRUBICIN [Concomitant]
     Route: 042
     Dates: start: 20080306
  4. ENDOXAN [Concomitant]
     Route: 042
     Dates: start: 20080306

REACTIONS (1)
  - LEUKOCYTOSIS [None]
